FAERS Safety Report 6312708-1 (Version None)
Quarter: 2009Q3

REPORT INFORMATION
  Report Type: 
  Country: None (occurrence: None)
  Receive Date: 20090814
  Receipt Date: 20090814
  Transmission Date: 20100115
  Serious: Yes (Other)
  Sender: FDA-Public Use
  Company Number: None

PATIENT
  Age: 39 Year
  Sex: Male
  Weight: 145.6046 kg

DRUGS (3)
  1. GAMMAGARD LIQUID [Suspect]
     Dosage: 0.60 GRAM QD X 5 DAYS
     Dates: start: 20090810
  2. GAMMAGARD LIQUID [Suspect]
     Dosage: 0.60 GRAM QD X 5 DAYS
     Dates: start: 20090811
  3. GAMMAGARD LIQUID [Suspect]
     Dosage: 0.60 GRAM QD X 5 DAYS
     Dates: start: 20090812

REACTIONS (4)
  - ARTHRALGIA [None]
  - GAIT DISTURBANCE [None]
  - HEADACHE [None]
  - PAIN IN EXTREMITY [None]
